FAERS Safety Report 7905501-7 (Version None)
Quarter: 2011Q4

REPORT INFORMATION
  Report Type: 
  Country: None (occurrence: None)
  Receive Date: 20111110
  Receipt Date: 20111101
  Transmission Date: 20120403
  Serious: No
  Sender: FDA-Public Use
  Company Number: US-BIOGENIDEC-2011BI011152

PATIENT
  Age: 36 Year
  Sex: Male

DRUGS (2)
  1. PAIN MEDICATION (NOS) [Concomitant]
     Indication: PAIN
  2. TYSABRI [Suspect]
     Indication: MULTIPLE SCLEROSIS
     Route: 042
     Dates: start: 20070820

REACTIONS (5)
  - NASOPHARYNGITIS [None]
  - FATIGUE [None]
  - MEMORY IMPAIRMENT [None]
  - INSOMNIA [None]
  - MUSCLE SPASMS [None]
